FAERS Safety Report 17049218 (Version 1)
Quarter: 2019Q4

REPORT INFORMATION
  Report Type: Spontaneous
  Country: US (occurrence: US)
  Receive Date: 20191119
  Receipt Date: 20191119
  Transmission Date: 20200122
  Serious: Yes (Hospitalization, Other)
  Sender: FDA-Public Use
  Company Number: NVSC2019US039004

PATIENT
  Age: 59 Year
  Sex: Male

DRUGS (1)
  1. ENTRESTO [Suspect]
     Active Substance: SACUBITRIL\VALSARTAN
     Indication: CARDIAC FAILURE
     Dosage: 50 MG, BID
     Route: 048
     Dates: start: 20191107, end: 20191108

REACTIONS (4)
  - Renal failure [Recovering/Resolving]
  - Blood pressure decreased [Recovering/Resolving]
  - Hepatic failure [Recovering/Resolving]
  - Hypoperfusion [Recovering/Resolving]

NARRATIVE: CASE EVENT DATE: 20191108
